FAERS Safety Report 5408660-3 (Version None)
Quarter: 2007Q3

REPORT INFORMATION
  Report Type: 
  Country: None (occurrence: None)
  Receive Date: 20070808
  Receipt Date: 20070731
  Transmission Date: 20080115
  Serious: Yes (Other)
  Sender: FDA-Public Use
  Company Number: US-PFIZER INC-2007003165

PATIENT
  Sex: Female
  Weight: 60.8 kg

DRUGS (9)
  1. NEURONTIN [Suspect]
     Indication: NERVE INJURY
     Route: 048
  2. METOPROLOL SUCCINATE [Concomitant]
  3. ACETYLSALICYLIC ACID SRT [Concomitant]
  4. PREVACID [Concomitant]
  5. PROCARDIA XL [Concomitant]
  6. DYAZIDE [Concomitant]
  7. LIPITOR [Concomitant]
  8. VALIUM [Concomitant]
  9. FOSAMAX [Concomitant]

REACTIONS (17)
  - ACTIVITIES OF DAILY LIVING IMPAIRED [None]
  - AMNESIA [None]
  - AORTIC VALVE INCOMPETENCE [None]
  - BALANCE DISORDER [None]
  - BLOOD CHOLESTEROL INCREASED [None]
  - BLOOD POTASSIUM DECREASED [None]
  - BLOOD TRIGLYCERIDES INCREASED [None]
  - BODY HEIGHT DECREASED [None]
  - CONTUSION [None]
  - EAR PAIN [None]
  - EAR PRURITUS [None]
  - FALL [None]
  - FATIGUE [None]
  - FEELING ABNORMAL [None]
  - GAIT DISTURBANCE [None]
  - GALLBLADDER OPERATION [None]
  - INJURY [None]
